FAERS Safety Report 4399299-X (Version None)
Quarter: 2004Q3

REPORT INFORMATION
  Report Type: 
  Country: None (occurrence: None)
  Receive Date: 20040712
  Receipt Date: 20040702
  Transmission Date: 20050211
  Serious: Yes (Hospitalization, Other)
  Sender: FDA-Public Use
  Company Number: DSK-2004-05203

PATIENT
  Age: 63 Year
  Sex: Female

DRUGS (9)
  1. EVOXAC [Suspect]
     Indication: SJOGREN'S SYNDROME
     Dosage: 90 MG (30 MG, 3 IN 1 D)
     Route: 048
     Dates: start: 20030212, end: 20040421
  2. LEVOFLOXACIN [Concomitant]
  3. PL (CAFFEINE , CALICYLAMIDE, PARACETAMOL, PROMETHAZINE METHYLENE DISAL [Concomitant]
  4. NAUZELIN (DOMPERIDONE) [Concomitant]
  5. LOXONIN (LOXOPROFEN SODIUM) [Concomitant]
  6. FAMOTIDINE [Concomitant]
  7. PROMAC (POLAPREZINC) [Concomitant]
  8. ISODINE (POVIDONE-IODINE) [Concomitant]
  9. AMOBAN (ZOPICLONE) [Concomitant]

REACTIONS (15)
  - ALANINE AMINOTRANSFERASE INCREASED [None]
  - ANOREXIA [None]
  - ASPARTATE AMINOTRANSFERASE INCREASED [None]
  - BLOOD PROLACTIN INCREASED [None]
  - BLOOD THYROID STIMULATING HORMONE DECREASED [None]
  - C-REACTIVE PROTEIN INCREASED [None]
  - DIARRHOEA [None]
  - LABORATORY TEST ABNORMAL [None]
  - LIVER DISORDER [None]
  - LYMPHOMA [None]
  - MALAISE [None]
  - NASOPHARYNGITIS [None]
  - NAUSEA [None]
  - PITUITARY TUMOUR BENIGN [None]
  - VOMITING [None]
